FAERS Safety Report 9758354 (Version 2)
Quarter: 2013Q4

REPORT INFORMATION
  Report Type: Report from Study
  Country: PL (occurrence: PL)
  Receive Date: 20131216
  Receipt Date: 20131223
  Transmission Date: 20140711
  Serious: Yes (Hospitalization)
  Sender: FDA-Public Use
  Company Number: PL-SHIRE-ALL1-2013-08583

PATIENT
  Age: 16 Year
  Sex: Male
  Weight: 18.6 kg

DRUGS (13)
  1. IDURSULFASE [Suspect]
     Indication: MUCOPOLYSACCHARIDOSIS II
     Dosage: UNK UNK, UNKNOWN
     Route: 041
     Dates: start: 20090924, end: 201106
  2. SPIRONOLACTONE [Concomitant]
     Indication: CARDIOVASCULAR DISORDER
     Dosage: 12.5 MG, 1X/DAY:QD
     Route: 048
     Dates: start: 2011
  3. TRIMEBUTINE [Concomitant]
     Indication: GASTROINTESTINAL DISORDER
     Dosage: UNK UNK, UNKNOWN
     Route: 065
     Dates: start: 20100701
  4. INHIBACE                           /00845401/ [Concomitant]
     Indication: CARDIOVASCULAR DISORDER
     Dosage: 0.25 MG, 1X/DAY:QD
     Route: 048
     Dates: start: 20090916
  5. PLEXXO [Concomitant]
     Indication: NERVOUS SYSTEM DISORDER
     Dosage: 75 MG, 2X/DAY:BID
     Route: 048
     Dates: start: 20090916
  6. KEPPRA [Concomitant]
     Indication: NERVOUS SYSTEM DISORDER
     Dosage: 250 MG, 2X/DAY:BID
     Route: 065
     Dates: start: 20090916
  7. RANIGAST [Concomitant]
     Indication: GASTROINTESTINAL DISORDER
     Dosage: 50 MG, 2X/DAY:BID
     Route: 041
     Dates: start: 20120626, end: 201207
  8. ZINACEF                            /00454601/ [Concomitant]
     Indication: PRODUCT USED FOR UNKNOWN INDICATION
     Dosage: 1 G, 2X/DAY:BID
     Route: 041
     Dates: start: 20120626, end: 201207
  9. FUROSEMID                          /00032601/ [Concomitant]
     Indication: CARDIOVASCULAR DISORDER
     Dosage: UNK, UNKNOWN
     Route: 065
     Dates: start: 20120628, end: 2012
  10. SOPODORM                           /00634101/ [Concomitant]
     Indication: SLEEP DISORDER
     Dosage: UNK, UNKNOWN
     Route: 065
     Dates: start: 20120628, end: 201206
  11. PERFALGAN [Concomitant]
     Indication: PAIN
     Dosage: UNK, UNKNOWN
     Route: 065
     Dates: start: 20120628, end: 201206
  12. DEXAVEN [Concomitant]
     Indication: PRODUCT USED FOR UNKNOWN INDICATION
     Dosage: UNK, UNKNOWN
     Route: 065
     Dates: start: 20120628, end: 2012
  13. THEOSPIREX                         /00012201/ [Concomitant]
     Indication: OBSTRUCTIVE AIRWAYS DISORDER
     Dosage: UNK, UNKNOWN
     Route: 065
     Dates: start: 20120628, end: 2012

REACTIONS (3)
  - Respiratory acidosis [Recovering/Resolving]
  - Feeding disorder [Unknown]
  - Respiratory failure [Recovering/Resolving]
